FAERS Safety Report 4502326-X (Version None)
Quarter: 2004Q4

REPORT INFORMATION
  Report Type: 
  Country: None (occurrence: None)
  Receive Date: 20041116
  Receipt Date: 20041108
  Transmission Date: 20050328
  Serious: Yes (Hospitalization)
  Sender: FDA-Public Use
  Company Number: JP-GLAXOSMITHKLINE-B0351147A

PATIENT
  Age: 60 Year
  Sex: Male

DRUGS (9)
  1. CARVEDILOL [Suspect]
     Indication: CARDIAC FAILURE CHRONIC
     Dosage: 5MG TWICE PER DAY
     Route: 048
     Dates: start: 20040611
  2. METILDIGOXIN [Concomitant]
     Route: 048
     Dates: start: 20040530, end: 20040705
  3. LASIX [Concomitant]
     Dates: start: 20040528
  4. WARFARIN SODIUM [Concomitant]
     Dates: start: 20040528
  5. CIBENOL [Concomitant]
     Dates: start: 20040604
  6. APRINDINE HYDROCHLORIDE [Concomitant]
     Dates: start: 20040528, end: 20040603
  7. DESLANOSIDE [Concomitant]
     Dates: start: 20040528
  8. ALLOPURINOL TAB [Concomitant]
     Dosage: 100MG PER DAY
     Route: 048
     Dates: start: 20040529, end: 20040702
  9. MICARDIS [Concomitant]
     Dosage: 20MG PER DAY
     Route: 048
     Dates: start: 20040529, end: 20040705

REACTIONS (3)
  - HEPATIC FUNCTION ABNORMAL [None]
  - PYREXIA [None]
  - RENAL IMPAIRMENT [None]
